FAERS Safety Report 20725001 (Version 1)
Quarter: 2022Q2

REPORT INFORMATION
  Report Type: Spontaneous
  Country: US (occurrence: None)
  Receive Date: 20220418
  Receipt Date: 20220418
  Transmission Date: 20220721
  Serious: Yes (Congenital Anomaly, Other)
  Sender: FDA-Public Use
  Company Number: None

PATIENT
  Age: 0 Year
  Sex: Male
  Weight: 2.2 kg

DRUGS (4)
  1. QUETIAPINE [Suspect]
     Active Substance: QUETIAPINE
  2. BUPROPION [Suspect]
     Active Substance: BUPROPION
  3. ESCITALOPRAM [Suspect]
     Active Substance: ESCITALOPRAM OXALATE
  4. METFORMIN [Suspect]
     Active Substance: METFORMIN HYDROCHLORIDE

REACTIONS (11)
  - Maternal exposure during pregnancy [None]
  - Foetal exposure during pregnancy [None]
  - Dandy-Walker syndrome [None]
  - Hydrocephalus [None]
  - Micrognathia [None]
  - Joint ankylosis [None]
  - Trismus [None]
  - Microtia [None]
  - Hypospadias [None]
  - Bradycardia [None]
  - Congenital musculoskeletal disorder of spine [None]

NARRATIVE: CASE EVENT DATE: 20181221
